FAERS Safety Report 6960019-3 (Version None)
Quarter: 2010Q3

REPORT INFORMATION
  Report Type: 
  Country: None (occurrence: None)
  Receive Date: 20100901
  Receipt Date: 20100824
  Transmission Date: 20110219
  Serious: Yes (Death, Other)
  Sender: FDA-Public Use
  Company Number: US-CELGENEUS-163-20785-10082761

PATIENT

DRUGS (5)
  1. THALOMID [Suspect]
     Route: 048
  2. CARBOPLATIN [Suspect]
     Dosage: AUC=6
     Route: 065
  3. CARBOPLATIN [Suspect]
     Dosage: AUC=2
     Route: 065
  4. PACLITAXEL [Suspect]
     Route: 065
  5. PACLITAXEL [Suspect]
     Route: 065

REACTIONS (2)
  - BONE MARROW FAILURE [None]
  - EMBOLISM ARTERIAL [None]
